FAERS Safety Report 13994778 (Version 4)
Quarter: 2017Q4

REPORT INFORMATION
  Report Type: Report from Study
  Country: CN (occurrence: CN)
  Receive Date: 20170921
  Receipt Date: 20171229
  Transmission Date: 20180321
  Serious: Yes (Hospitalization)
  Sender: FDA-Public Use
  Company Number: CN-ROCHE-1993496

PATIENT
  Age: 72 Year
  Sex: Male
  Weight: 49 kg

DRUGS (18)
  1. CARBOPLATIN. [Suspect]
     Active Substance: CARBOPLATIN
     Indication: SMALL CELL LUNG CANCER EXTENSIVE STAGE
     Dosage: TO ACHIEVE AN INITIAL TARGET AUC OF 5 MG/ML/MIN WILL BE ADMINISTERED ON DAY 1 OF EACH 21-DAY CYCLE D
     Route: 042
     Dates: start: 20170817
  2. POTASSIUM CHLORIDE. [Concomitant]
     Active Substance: POTASSIUM CHLORIDE
     Route: 042
     Dates: start: 20170821, end: 20170821
  3. GLUTATHIONE [Concomitant]
     Active Substance: GLUTATHIONE
     Route: 042
     Dates: start: 20170908, end: 20170916
  4. TROPISETRON HYDROCHLORIDE [Concomitant]
     Active Substance: TROPISETRON HYDROCHLORIDE
     Indication: VOMITING
     Route: 042
     Dates: start: 20170908, end: 20170910
  5. POTASSIUM CHLORIDE. [Concomitant]
     Active Substance: POTASSIUM CHLORIDE
     Indication: NAUSEA
     Route: 042
     Dates: start: 20170820, end: 20170820
  6. GLUCOSE/SODIUM CHLORIDE [Concomitant]
     Active Substance: DEXTROSE\SODIUM CHLORIDE
     Indication: NAUSEA
     Route: 042
     Dates: start: 20170820, end: 20170821
  7. OMEPRAZOLE. [Concomitant]
     Active Substance: OMEPRAZOLE
     Route: 042
     Dates: start: 20170817, end: 20170823
  8. GLUTATHIONE [Concomitant]
     Active Substance: GLUTATHIONE
     Route: 042
     Dates: start: 20170817, end: 20170823
  9. GRANISETRON [Concomitant]
     Active Substance: GRANISETRON
     Route: 042
     Dates: start: 20170911, end: 20170912
  10. ETOPOSIDE. [Suspect]
     Active Substance: ETOPOSIDE
     Indication: SMALL CELL LUNG CANCER EXTENSIVE STAGE
     Dosage: DATE OF MOST RECENT DOSE OF ETOPOSIDE (148MG) PRIOR TO AE ONSET: 10/SEP/2017 AT 15:14
     Route: 042
     Dates: start: 20170817
  11. METOCLOPRAMIDE. [Concomitant]
     Active Substance: METOCLOPRAMIDE
     Indication: NAUSEA
     Route: 030
     Dates: start: 20170821, end: 20170821
  12. ATEZOLIZUMAB. [Suspect]
     Active Substance: ATEZOLIZUMAB
     Indication: SMALL CELL LUNG CANCER EXTENSIVE STAGE
     Dosage: DATE OF MOST RECENT DOSE OF BLINDED ATEZOLIZUMAB PRIOR TO SAE: 08/SEP/2017 AT 12:35
     Route: 042
     Dates: start: 20170817
  13. GRANISETRON [Concomitant]
     Active Substance: GRANISETRON
     Indication: NAUSEA
     Route: 042
     Dates: start: 20170817, end: 20170820
  14. SALT [Concomitant]
     Active Substance: SODIUM CHLORIDE
     Indication: HYPONATRAEMIA
     Route: 048
     Dates: start: 20170803, end: 20170823
  15. SALT [Concomitant]
     Active Substance: SODIUM CHLORIDE
     Indication: HYPOCHLORAEMIA
  16. GLUCOSE [Concomitant]
     Active Substance: DEXTROSE
     Indication: NAUSEA
     Route: 042
     Dates: start: 20170821, end: 20170821
  17. TROPISETRON HYDROCHLORIDE [Concomitant]
     Active Substance: TROPISETRON HYDROCHLORIDE
     Indication: NAUSEA
     Route: 042
     Dates: start: 20170817, end: 20170820
  18. GRANISETRON [Concomitant]
     Active Substance: GRANISETRON
     Indication: VOMITING
     Route: 042
     Dates: start: 20170908, end: 20170910

REACTIONS (1)
  - White blood cell count decreased [Recovered/Resolved]

NARRATIVE: CASE EVENT DATE: 20170913
